FAERS Safety Report 17107979 (Version 1)
Quarter: 2019Q4

REPORT INFORMATION
  Report Type: Spontaneous
  Country: JP (occurrence: JP)
  Receive Date: 20191203
  Receipt Date: 20191203
  Transmission Date: 20200122
  Serious: Yes (Other)
  Sender: FDA-Public Use
  Company Number: JP-PFIZER INC-2019517446

PATIENT
  Age: 24 Year
  Sex: Male

DRUGS (1)
  1. CEFTRIAXONE SODIUM BAG 1G PFIZER [Suspect]
     Active Substance: CEFTRIAXONE SODIUM
     Indication: GONORRHOEA
     Dosage: UNK
     Route: 041

REACTIONS (2)
  - Loss of consciousness [Unknown]
  - Hypersomnia [Unknown]
